FAERS Safety Report 9681025 (Version 1)
Quarter: 2013Q4

REPORT INFORMATION
  Report Type: Spontaneous
  Country: US (occurrence: None)
  Receive Date: 20131108
  Receipt Date: 20131108
  Transmission Date: 20140711
  Serious: Yes (Other)
  Sender: FDA-Public Use
  Company Number: None

PATIENT
  Age: 46 Year
  Sex: Female

DRUGS (1)
  1. TECFIDERA 240 MG BIOGEN IDEC [Suspect]
     Indication: MULTIPLE SCLEROSIS
     Route: 048
     Dates: start: 20131023

REACTIONS (8)
  - Headache [None]
  - Condition aggravated [None]
  - Eyelid disorder [None]
  - Pain [None]
  - Movement disorder [None]
  - Head injury [None]
  - Fall [None]
  - Asthenia [None]
